FAERS Safety Report 8883870 (Version 1)
Quarter: 2012Q4

REPORT INFORMATION
  Report Type: 
  Country: US (occurrence: US)
  Receive Date: 20121102
  Receipt Date: 20121102
  Transmission Date: 20130627
  Serious: No
  Sender: FDA-Public Use
  Company Number: US-ASTRAZENECA-2012SE09466

PATIENT
  Sex: Female

DRUGS (12)
  1. CRESTOR [Suspect]
     Indication: BLOOD CHOLESTEROL
     Route: 048
  2. LIPITOR [Concomitant]
  3. TYLENOL [Concomitant]
  4. LIV [Concomitant]
  5. CO Q10 [Concomitant]
  6. FISH OIL [Concomitant]
  7. B COMPLEX [Concomitant]
  8. CALCIUM CITRATE WITH D1 [Concomitant]
  9. VITAMIN D3 [Concomitant]
  10. ADVIL [Concomitant]
  11. SPIRIVA [Concomitant]
  12. FOSOMAX [Concomitant]

REACTIONS (3)
  - Pain [Unknown]
  - Myalgia [Unknown]
  - Off label use [Unknown]
